FAERS Safety Report 4680236-5 (Version None)
Quarter: 2005Q2

REPORT INFORMATION
  Report Type: 
  Country: None (occurrence: None)
  Receive Date: 20050531
  Receipt Date: 20050511
  Transmission Date: 20051028
  Serious: Yes (Hospitalization)
  Sender: FDA-Public Use
  Company Number: MPS1-10373

PATIENT
  Age: 7 Year
  Sex: Male
  Weight: 17 kg

DRUGS (1)
  1. ALDURAZYME [Suspect]
     Indication: MUCOPOLYSACCHARIDOSIS I
     Dosage: 8.7 MG DAILY IV
     Route: 042
     Dates: start: 20030501

REACTIONS (4)
  - BODY TEMPERATURE INCREASED [None]
  - DISEASE RECURRENCE [None]
  - INFECTION [None]
  - SLEEP DISORDER [None]
